FAERS Safety Report 4993009-0 (Version None)
Quarter: 2006Q2

REPORT INFORMATION
  Report Type: 
  Country: None (occurrence: None)
  Receive Date: 20060504
  Receipt Date: 20050404
  Transmission Date: 20061013
  Serious: Yes (Hospitalization)
  Sender: FDA-Public Use
  Company Number: US-MERCK-0504USA00531

PATIENT
  Age: 73 Year
  Sex: Female
  Weight: 89 kg

DRUGS (13)
  1. VIOXX [Suspect]
     Indication: ARTHRITIS
     Route: 048
     Dates: start: 20001211, end: 20041004
  2. VIOXX [Suspect]
     Route: 048
     Dates: start: 20001211, end: 20041004
  3. VIOXX [Suspect]
     Indication: FIBROMYALGIA
     Route: 048
     Dates: start: 20001211, end: 20041004
  4. VIOXX [Suspect]
     Route: 048
     Dates: start: 20001211, end: 20041004
  5. TYLENOL (CAPLET) [Concomitant]
     Route: 048
  6. ASPIRIN [Concomitant]
     Route: 048
  7. PRILOSEC [Concomitant]
     Route: 048
  8. LANOXIN [Concomitant]
     Route: 048
  9. SYNTHROID [Concomitant]
     Route: 048
  10. PREMARIN [Concomitant]
     Route: 048
  11. CARDIZEM CD [Concomitant]
     Route: 048
  12. VITAMINS (UNSPECIFIED) [Concomitant]
     Route: 065
  13. TRAZODONE HYDROCHLORIDE [Concomitant]
     Route: 048

REACTIONS (64)
  - ABDOMINAL PAIN [None]
  - ANGINA PECTORIS [None]
  - ANGINA UNSTABLE [None]
  - AORTIC VALVE INCOMPETENCE [None]
  - AORTIC VALVE SCLEROSIS [None]
  - ARRHYTHMIA [None]
  - ASTHENIA [None]
  - ATRIAL FIBRILLATION [None]
  - BALANCE DISORDER [None]
  - BLOOD PRESSURE ABNORMAL [None]
  - CARDIAC VALVE DISEASE [None]
  - CARDIOVASCULAR DISORDER [None]
  - CHEST DISCOMFORT [None]
  - CHEST PAIN [None]
  - CHROMATURIA [None]
  - CHRONIC OBSTRUCTIVE PULMONARY DISEASE [None]
  - CORONARY ARTERY DISEASE [None]
  - CORONARY ARTERY OCCLUSION [None]
  - CORONARY ARTERY RESTENOSIS [None]
  - CORONARY ARTERY STENOSIS [None]
  - COUGH [None]
  - DEPRESSION [None]
  - DEPRESSIVE SYMPTOM [None]
  - DISCOMFORT [None]
  - DIZZINESS [None]
  - DYSPNOEA [None]
  - DYSURIA [None]
  - ELECTROCARDIOGRAM ST SEGMENT ABNORMAL [None]
  - EXERCISE TOLERANCE DECREASED [None]
  - FATIGUE [None]
  - FEELING ABNORMAL [None]
  - FIBROMYALGIA [None]
  - FLANK PAIN [None]
  - FLUSHING [None]
  - FUNGAL INFECTION [None]
  - HIATUS HERNIA [None]
  - HYPERHIDROSIS [None]
  - HYPERLIPIDAEMIA [None]
  - HYPERTENSION [None]
  - HYPOTENSION [None]
  - INJURY [None]
  - INSOMNIA [None]
  - MICTURITION URGENCY [None]
  - MYALGIA [None]
  - MYOCARDIAL INFARCTION [None]
  - MYOSITIS [None]
  - NASAL DISORDER [None]
  - NAUSEA [None]
  - NON-CARDIAC CHEST PAIN [None]
  - OBSTRUCTION [None]
  - OBSTRUCTIVE AIRWAYS DISORDER [None]
  - PAIN [None]
  - PALPITATIONS [None]
  - POLLAKIURIA [None]
  - SCAB [None]
  - STENT OCCLUSION [None]
  - THROAT IRRITATION [None]
  - URINARY TRACT INFECTION [None]
  - VERTIGO [None]
  - VERTIGO POSITIONAL [None]
  - VISION BLURRED [None]
  - VISUAL DISTURBANCE [None]
  - VOMITING [None]
  - WEIGHT INCREASED [None]
